FAERS Safety Report 10149899 (Version 2)
Quarter: 2014Q2

REPORT INFORMATION
  Report Type: Spontaneous
  Country: US (occurrence: US)
  Receive Date: 20140502
  Receipt Date: 20140502
  Transmission Date: 20141212
  Serious: Yes (Hospitalization, Other)
  Sender: FDA-Public Use
  Company Number: US-AMGEN INC.-KDL270812

PATIENT
  Age: 0 Year
  Sex: Female
  Weight: 1.81 kg

DRUGS (4)
  1. ENBREL [Suspect]
     Indication: PRODUCT USED FOR UNKNOWN INDICATION
     Dosage: 50 MG, QWK
     Route: 064
     Dates: start: 20060701, end: 20070730
  2. INFLUENZA VACCINE [Concomitant]
     Dosage: UNK UNK, UNK
     Route: 064
     Dates: start: 20071030, end: 20071030
  3. CORTICOSTEROID NOS [Concomitant]
     Dosage: UNK UNK, UNK
     Route: 064
     Dates: start: 20071130, end: 20071130
  4. CELESTONE                          /00008501/ [Concomitant]
     Dosage: 12 MG, QD
     Route: 064
     Dates: start: 20080219, end: 20080220

REACTIONS (12)
  - Premature baby [Unknown]
  - Congenital cystic kidney disease [Not Recovered/Not Resolved]
  - Single umbilical artery [Unknown]
  - Apnoea neonatal [Recovered/Resolved]
  - Umbilical cord short [Unknown]
  - Atrial septal defect [Unknown]
  - Ventricular septal defect [Unknown]
  - Foetal growth restriction [Unknown]
  - Congenital hydronephrosis [Unknown]
  - Deafness [Unknown]
  - Ureterocele [Unknown]
  - Pseudomonas infection [Unknown]
